FAERS Safety Report 20827112 (Version 3)
Quarter: 2022Q3

REPORT INFORMATION
  Report Type: Spontaneous
  Country: US (occurrence: US)
  Receive Date: 20220513
  Receipt Date: 20220912
  Transmission Date: 20221027
  Serious: No
  Sender: FDA-Public Use
  Company Number: US-PFIZER INC-202200605251

PATIENT
  Age: 17 Year
  Sex: Female

DRUGS (1)
  1. XELJANZ [Suspect]
     Active Substance: TOFACITINIB CITRATE
     Dosage: UNK

REACTIONS (6)
  - Rash [Unknown]
  - Abdominal pain upper [Unknown]
  - Glossodynia [Unknown]
  - Pruritus [Unknown]
  - Diarrhoea [Unknown]
  - Eczema [Unknown]
